FAERS Safety Report 18012316 (Version 2)
Quarter: 2021Q2

REPORT INFORMATION
  Report Type: Spontaneous
  Country: CA (occurrence: CA)
  Receive Date: 20200713
  Receipt Date: 20210628
  Transmission Date: 20210717
  Serious: Yes (Other)
  Sender: FDA-Public Use
  Company Number: CA-TEVA-2020-CA-1798174

PATIENT
  Age: 44 Year
  Sex: Female
  Weight: 90 kg

DRUGS (5)
  1. DECADRON [Concomitant]
     Active Substance: DEXAMETHASONE
  2. CISPLATIN INJECTION, BP SINGLE DOSE VIALS. 10MG/10ML AND 50MG/50ML.PRE [Suspect]
     Active Substance: CISPLATIN
     Indication: MEDULLOBLASTOMA
     Dosage: 50 MILLIGRAM DAILY;
     Route: 042
  3. CISPLATIN INJECTION, BP SINGLE DOSE VIALS. 10MG/10ML AND 50MG/50ML.PRE [Suspect]
     Active Substance: CISPLATIN
     Indication: CHEMOTHERAPY
  4. CISPLATIN INJECTION, BP SINGLE DOSE VIALS. 10MG/10ML AND 50MG/50ML.PRE [Suspect]
     Active Substance: CISPLATIN
     Indication: ADJUVANT THERAPY
  5. ETOPOSIDE. [Concomitant]
     Active Substance: ETOPOSIDE

REACTIONS (1)
  - Sinus bradycardia [Unknown]
